FAERS Safety Report 11823177 (Version 1)
Quarter: 2015Q4

REPORT INFORMATION
  Report Type: Spontaneous
  Country: CA (occurrence: CA)
  Receive Date: 20151210
  Receipt Date: 20151210
  Transmission Date: 20160305
  Serious: Yes (Hospitalization, Other)
  Sender: FDA-Public Use
  Company Number: CA-BAYER-200115124GDS

PATIENT
  Age: 69 Year
  Sex: Female

DRUGS (3)
  1. NORFLOXACIN [Concomitant]
     Active Substance: NORFLOXACIN
     Indication: INFECTION
     Dosage: 400 MG (DAILY DOSE), ONCE, UNKNOWN
     Route: 065
  2. CEFAZOLIN [Concomitant]
     Active Substance: CEFAZOLIN
     Indication: INFECTION
     Dosage: 4 G (DAILY DOSE), QID, UNKNOWN
     Route: 065
  3. CIPROFLOXACIN. [Suspect]
     Active Substance: CIPROFLOXACIN
     Indication: SEPSIS
     Dosage: 800 MG (DAILY DOSE), BID, INTRAVENOUS
     Route: 042

REACTIONS (10)
  - Stupor [Recovered/Resolved]
  - Hypertension [Recovered/Resolved]
  - Sinus tachycardia [Recovered/Resolved]
  - Depressed level of consciousness [Recovered/Resolved]
  - Seizure [None]
  - Echolalia [Recovered/Resolved]
  - Visual impairment [Recovered/Resolved]
  - Neuropathy peripheral [Recovered/Resolved]
  - Coordination abnormal [Recovered/Resolved]
  - Extensor plantar response [Recovered/Resolved]
